FAERS Safety Report 8272350-2 (Version None)
Quarter: 2012Q1

REPORT INFORMATION
  Report Type: 
  Country: None (occurrence: None)
  Receive Date: 20120321
  Receipt Date: 20110831
  Transmission Date: 20120608
  Serious: Yes (Other)
  Sender: FDA-Public Use
  Company Number: 2011SP041320

PATIENT
  Sex: Male

DRUGS (6)
  1. NEXIUM [Concomitant]
  2. POTASSIUM [Concomitant]
  3. RIBAVIRIN [Suspect]
     Indication: HEPATITIS C
     Dosage: 600 MG;BID;
  4. LOSARTAN POTASSIUM [Concomitant]
  5. PEG-INTRON [Suspect]
     Indication: HEPATITIS C
     Dosage: 120 MG;QW;
  6. KEPPRA [Concomitant]

REACTIONS (4)
  - VISUAL FIELD DEFECT [None]
  - MIGRAINE [None]
  - IRRITABILITY [None]
  - CONVULSION [None]
